FAERS Safety Report 9695419 (Version 5)
Quarter: 2014Q1

REPORT INFORMATION
  Report Type: Spontaneous
  Country: US (occurrence: US)
  Receive Date: 20131119
  Receipt Date: 20140205
  Transmission Date: 20141002
  Serious: Yes (Hospitalization, Other)
  Sender: FDA-Public Use
  Company Number: US-JNJFOC-20131107176

PATIENT
  Age: 52 Year
  Sex: Female
  Weight: 80.74 kg

DRUGS (14)
  1. REMICADE [Suspect]
     Indication: COLITIS ULCERATIVE
     Route: 042
     Dates: start: 201310
  2. REMICADE [Suspect]
     Indication: COLITIS ULCERATIVE
     Dosage: 50 UNITS
     Route: 042
     Dates: start: 201209
  3. REMICADE [Suspect]
     Indication: COLITIS ULCERATIVE
     Dosage: 400 MG
     Route: 042
     Dates: start: 20131221, end: 20131221
  4. ULTRAM [Suspect]
     Indication: RESTLESS LEGS SYNDROME
     Route: 048
  5. METFORMIN [Concomitant]
     Indication: DIABETES MELLITUS
     Route: 048
  6. LANTUS [Concomitant]
     Indication: DIABETES MELLITUS
     Dosage: 50 UNITS
     Route: 048
     Dates: start: 2012
  7. RAMIPRIL [Concomitant]
     Indication: DIABETES MELLITUS
     Route: 048
  8. RAMIPRIL [Concomitant]
     Indication: PROPHYLAXIS
     Route: 048
  9. SIMVASTATIN [Concomitant]
     Indication: DIABETES MELLITUS
     Route: 048
  10. SIMVASTATIN [Concomitant]
     Indication: BLOOD CHOLESTEROL
     Route: 048
  11. FEOSOL [Concomitant]
     Indication: ANAEMIA
     Dosage: 100MG/TABLET/50MG/DAILY/ORAL
     Route: 048
  12. HYDROCODONE [Concomitant]
     Indication: COLITIS ULCERATIVE
     Route: 065
  13. BENADRYL [Concomitant]
     Indication: PREMEDICATION
     Route: 042
     Dates: start: 20131221
  14. ROPINIROLE [Concomitant]
     Indication: RESTLESS LEGS SYNDROME
     Route: 048

REACTIONS (15)
  - Restless legs syndrome [Not Recovered/Not Resolved]
  - Subdural haematoma [Recovered/Resolved]
  - Sinusitis [Recovering/Resolving]
  - Infusion related reaction [Unknown]
  - Oropharyngeal pain [Unknown]
  - Pruritus [Recovered/Resolved]
  - Musculoskeletal stiffness [Unknown]
  - Local swelling [Recovering/Resolving]
  - Joint swelling [Recovering/Resolving]
  - Asthenia [Unknown]
  - Arthralgia [Not Recovered/Not Resolved]
  - Hypoaesthesia [Unknown]
  - Stress [Unknown]
  - Anxiety [Unknown]
  - Mood swings [Unknown]
